FAERS Safety Report 11645455 (Version 4)
Quarter: 2016Q1

REPORT INFORMATION
  Report Type: Spontaneous
  Country: IT (occurrence: IT)
  Receive Date: 20151020
  Receipt Date: 20160226
  Transmission Date: 20160525
  Serious: Yes (Hospitalization)
  Sender: FDA-Public Use
  Company Number: IT-PFIZER INC-2015348575

PATIENT
  Age: 75 Year
  Sex: Female

DRUGS (2)
  1. ATORVASTATIN CALCIUM. [Suspect]
     Active Substance: ATORVASTATIN CALCIUM
     Indication: CARDIOVASCULAR DISORDER
     Dosage: 80 MG, DAILY
     Route: 048
     Dates: start: 20150101, end: 20150818
  2. ATORVASTATIN [Concomitant]
     Active Substance: ATORVASTATIN
     Dosage: 30 MG, UNK

REACTIONS (2)
  - Hepatotoxicity [Recovering/Resolving]
  - Myopathy toxic [Recovering/Resolving]

NARRATIVE: CASE EVENT DATE: 20150820
